FAERS Safety Report 16853169 (Version 1)
Quarter: 2019Q3

REPORT INFORMATION
  Report Type: Spontaneous
  Country: GB (occurrence: GB)
  Receive Date: 20190925
  Receipt Date: 20190925
  Transmission Date: 20191005
  Serious: Yes (Death)
  Sender: FDA-Public Use
  Company Number: PHHY2019GB222571

PATIENT

DRUGS (2)
  1. OFATUMUMAB [Suspect]
     Active Substance: OFATUMUMAB
     Dosage: 2000 MG, WEEKLY FOR 7 WEEKS AND THEN EVERY 4 WEEKS FOR 16 WEEKS
     Route: 042
  2. OFATUMUMAB [Suspect]
     Active Substance: OFATUMUMAB
     Indication: PRODUCT USED FOR UNKNOWN INDICATION
     Dosage: 300 MG, 1 WEEK
     Route: 042

REACTIONS (2)
  - Squamous cell carcinoma of skin [Fatal]
  - Second primary malignancy [Fatal]
